FAERS Safety Report 6993899-6 (Version None)
Quarter: 2010Q3

REPORT INFORMATION
  Report Type: 
  Country: None (occurrence: None)
  Receive Date: 20100917
  Receipt Date: 20100702
  Transmission Date: 20110219
  Serious: No
  Sender: FDA-Public Use
  Company Number: US-ASTRAZENECA-2010SE31046

PATIENT
  Age: 58 Year
  Sex: Female
  Weight: 44.5 kg

DRUGS (2)
  1. SEROQUEL [Suspect]
     Indication: PANIC ATTACK
     Route: 048
     Dates: start: 20100614
  2. SEROQUEL [Suspect]
     Route: 048
     Dates: start: 20091201, end: 20100301

REACTIONS (7)
  - CONSTIPATION [None]
  - DRUG DOSE OMISSION [None]
  - DRY MOUTH [None]
  - FATIGUE [None]
  - HEART RATE INCREASED [None]
  - MIDDLE INSOMNIA [None]
  - PANIC ATTACK [None]
